FAERS Safety Report 10109348 (Version 2)
Quarter: 2014Q3

REPORT INFORMATION
  Report Type: Spontaneous
  Country: US (occurrence: None)
  Receive Date: 20140421
  Receipt Date: 20140722
  Transmission Date: 20150326
  Serious: Yes (Other)
  Sender: FDA-Public Use
  Company Number: AEGR000274

PATIENT
  Age: 78 Year
  Sex: Female
  Weight: 49.4 kg

DRUGS (14)
  1. COLESTIPOL HYDROCHLORIDE (COLESTIPOL HYDROCHLORIDE) [Concomitant]
  2. HYDROCHLOROTHIAZIDE (HYDROCHLOROTHIAZIDE) [Concomitant]
     Active Substance: HYDROCHLOROTHIAZIDE
  3. OMEGA 3(FISH OIL) [Concomitant]
  4. JUXTAPID [Suspect]
     Active Substance: LOMITAPIDE MESYLATE
     Indication: TYPE IIA HYPERLIPIDAEMIA
     Route: 048
     Dates: start: 201311, end: 20140603
  5. OMEPRAZOLE (OMEPRAZOLE) [Concomitant]
     Active Substance: OMEPRAZOLE
  6. NIACIN (NICOTINIC ACID) [Concomitant]
  7. VITAMIN D (COLECALCIFEROL) [Concomitant]
  8. SKELAXIN (METAXALONE) [Concomitant]
  9. LEVOTHYROXINE SODIUM(LEVOTHYROXINE SODIUM) [Concomitant]
  10. VITAMIN E [Concomitant]
     Active Substance: .ALPHA.-TOCOPHEROL
  11. GABAPENTIN (GABAPENTIN) [Concomitant]
     Active Substance: GABAPENTIN
  12. LOSARTAN (LOSARTAN POTASSIUM) [Concomitant]
  13. OXYCODONE HCL (OXYCODONE HYDROCHLORIDE) [Concomitant]
  14. ASPIRIN (ACETYLSALICYLIC ACID) [Concomitant]
     Active Substance: ASPIRIN

REACTIONS (5)
  - Malaise [None]
  - Abdominal pain upper [None]
  - Asthenia [None]
  - Pruritus generalised [None]
  - Erythema [None]

NARRATIVE: CASE EVENT DATE: 201401
